FAERS Safety Report 4656794-3 (Version None)
Quarter: 2005Q2

REPORT INFORMATION
  Report Type: 
  Country: None (occurrence: None)
  Receive Date: 20050506
  Receipt Date: 20050429
  Transmission Date: 20051028
  Serious: Yes (Death)
  Sender: FDA-Public Use
  Company Number: 2005CG00431

PATIENT
  Age: 0 Day
  Sex: Male
  Weight: 2.9 kg

DRUGS (7)
  1. NAROPIN [Suspect]
     Indication: EPIDURAL ANAESTHESIA
     Dates: start: 20041219, end: 20041219
  2. ERYTHROCINE [Suspect]
     Indication: INFECTION PROPHYLAXIS
     Dosage: 1000 MG ONCE TPL
     Route: 061
     Dates: start: 20041219, end: 20041219
  3. ERYTHROCINE [Suspect]
     Indication: STREPTOCOCCAL INFECTION
     Dosage: 1000 MG ONCE TPL
     Route: 061
     Dates: start: 20041219, end: 20041219
  4. SUFENTA [Suspect]
     Indication: EPIDURAL ANAESTHESIA
     Dates: start: 20041219, end: 20041219
  5. NUBAIN [Suspect]
     Dosage: 20 MG  ONCE TPL
     Route: 061
     Dates: start: 20041219, end: 20041219
  6. PERFALGAN [Suspect]
     Dosage: 1 G TPL
     Route: 061
     Dates: start: 20041219, end: 20041219
  7. ATARAX [Suspect]
     Dosage: 100 MG ONCE TPL
     Route: 061
     Dates: start: 20041219, end: 20041219

REACTIONS (8)
  - ACIDOSIS [None]
  - BLOOD PH DECREASED [None]
  - C-REACTIVE PROTEIN INCREASED [None]
  - DEATH NEONATAL [None]
  - DRUG EXPOSURE DURING PREGNANCY [None]
  - INFECTION [None]
  - SUDDEN DEATH [None]
  - WHITE BLOOD CELL COUNT INCREASED [None]
